FAERS Safety Report 8995900 (Version 1)
Quarter: 2013Q1

REPORT INFORMATION
  Report Type: Spontaneous
  Country: US (occurrence: US)
  Receive Date: 20130103
  Receipt Date: 20130103
  Transmission Date: 20140127
  Serious: Yes (Other)
  Sender: FDA-Public Use
  Company Number: US-BAYER-2012-136482

PATIENT
  Age: 56 Year
  Sex: Female
  Weight: 116.1 kg

DRUGS (5)
  1. BRONKAID [Suspect]
     Indication: ASTHMA
     Dosage: 4 DF, QD
     Route: 048
     Dates: start: 1976
  2. METFORMIN [Concomitant]
  3. LASIX [Concomitant]
  4. SINGULAIR [Concomitant]
  5. THYROID [Concomitant]

REACTIONS (3)
  - Incorrect drug administration duration [None]
  - Diabetes mellitus [None]
  - Drug dependence [None]
